FAERS Safety Report 9493673 (Version 2)
Quarter: 2013Q3

REPORT INFORMATION
  Report Type: Report from Study
  Country: BD (occurrence: BD)
  Receive Date: 20130902
  Receipt Date: 20130902
  Transmission Date: 20140515
  Serious: Yes (Death)
  Sender: FDA-Public Use
  Company Number: PHHY2013BD091868

PATIENT
  Age: 77 Year
  Sex: Male

DRUGS (1)
  1. EXELON PATCH [Suspect]
     Indication: DEMENTIA
     Dosage: 9.5 MG, DAILY
     Route: 062
     Dates: start: 201303

REACTIONS (3)
  - Hypoglycaemia [Fatal]
  - Hypotension [Fatal]
  - Malaise [Unknown]
